FAERS Safety Report 5530369-6 (Version None)
Quarter: 2007Q4

REPORT INFORMATION
  Report Type: 
  Country: None (occurrence: None)
  Receive Date: 20071127
  Receipt Date: 20071115
  Transmission Date: 20080405
  Serious: Yes (Life-Threatening)
  Sender: FDA-Public Use
  Company Number: E2020-01861-SPO-JP

PATIENT
  Age: 76 Year

DRUGS (5)
  1. ARICEPT [Suspect]
     Indication: DEMENTIA
     Dosage: 3 MG, 1 IN 1 D, ORAL
     Route: 048
     Dates: start: 20070425, end: 20070428
  2. DOGMATYL (SULPRIDE) [Suspect]
     Indication: DEPRESSION
     Dosage: 100 MG, 2 IN 1 D, ORAL
     Route: 048
     Dates: start: 20060719, end: 20070502
  3. TOLEDOMIN (MILNACIPRAN HYDROCHLORIDE) [Concomitant]
  4. ALMARYL (AROTINOLOL HYDROCHLORIDE) [Concomitant]
  5. DEPAS (ETIZOLAM) [Concomitant]

REACTIONS (8)
  - BLOOD CREATINE PHOSPHOKINASE INCREASED [None]
  - DELIRIUM [None]
  - DYSPHAGIA [None]
  - EXTRAPYRAMIDAL DISORDER [None]
  - MOBILITY DECREASED [None]
  - NEUROLEPTIC MALIGNANT SYNDROME [None]
  - PARKINSONISM [None]
  - PYREXIA [None]
